FAERS Safety Report 25925949 (Version 1)
Quarter: 2025Q4

REPORT INFORMATION
  Report Type: Spontaneous
  Country: US (occurrence: US)
  Receive Date: 20251015
  Receipt Date: 20251015
  Transmission Date: 20260117
  Serious: Yes (Life-Threatening, Hospitalization)
  Sender: DR REDDYS
  Company Number: None

PATIENT
  Age: 57 Year
  Sex: Male

DRUGS (3)
  1. HEPARIN [Suspect]
     Active Substance: HEPARIN SODIUM
     Indication: Thoracic endovascular aortic repair
     Dosage: 5000 U IV
     Route: 042
  2. HEPARIN [Suspect]
     Active Substance: HEPARIN SODIUM
     Dosage: 14000 U IV
     Route: 042
  3. TENECTEPLASE [Concomitant]
     Active Substance: TENECTEPLASE
     Indication: Pulmonary embolism

REACTIONS (6)
  - Heparin-induced thrombocytopenia [Recovered/Resolved]
  - Peripheral vascular haematoma [Recovering/Resolving]
  - Extravasation blood [Recovering/Resolving]
  - Arterial occlusive disease [Recovering/Resolving]
  - Deep vein thrombosis [Recovering/Resolving]
  - Subcapsular renal haematoma [Recovering/Resolving]
